FAERS Safety Report 13940136 (Version 1)
Quarter: 2017Q3

REPORT INFORMATION
  Report Type: Spontaneous
  Country: DE (occurrence: DE)
  Receive Date: 20170906
  Receipt Date: 20170906
  Transmission Date: 20171127
  Serious: Yes (Congenital Anomaly)
  Sender: FDA-Public Use
  Company Number: DE-SUN PHARMACEUTICAL INDUSTRIES LTD-2017RR-148870

PATIENT
  Age: 1 Day
  Sex: Male
  Weight: 3.3 kg

DRUGS (3)
  1. CITALOPRAM [Suspect]
     Active Substance: CITALOPRAM HYDROBROMIDE
     Indication: DEPRESSION
     Dosage: 20 MG, DAILY, 0-40 GESTATIONAL WEEK
     Route: 064
     Dates: start: 20160818, end: 20170424
  2. FEMIBION SCHWANGERSCHAFT 1 [Concomitant]
     Indication: PROPHYLAXIS OF NEURAL TUBE DEFECT
     Dosage: 0.4 MG, BID, 4-40 GESTATIONAL WEEK
     Route: 064
  3. FAMENITA [Concomitant]
     Active Substance: PROGESTERONE
     Indication: SHORTENED CERVIX
     Dosage: 200 MG, DAILY, 25.3-28.1 GESTATIONAL WEEK
     Route: 064

REACTIONS (2)
  - Ventricular septal defect [Recovering/Resolving]
  - Foetal exposure during pregnancy [Recovering/Resolving]

NARRATIVE: CASE EVENT DATE: 20170424
